FAERS Safety Report 12637012 (Version 1)
Quarter: 2016Q3

REPORT INFORMATION
  Report Type: Spontaneous
  Country: CH (occurrence: CH)
  Receive Date: 20160809
  Receipt Date: 20160809
  Transmission Date: 20161109
  Serious: Yes (Hospitalization, Other)
  Sender: FDA-Public Use
  Company Number: CH-SUNOVION-2016SUN001932

PATIENT

DRUGS (7)
  1. PALIPERIDONE. [Concomitant]
     Active Substance: PALIPERIDONE
     Dosage: 3 MG, QD
     Route: 065
     Dates: end: 20160703
  2. LATUDA [Suspect]
     Active Substance: LURASIDONE HYDROCHLORIDE
     Indication: SCHIZOPHRENIA
     Dosage: 40 MG, QD
     Route: 048
     Dates: start: 20160704, end: 20160704
  3. ANTRA [Concomitant]
     Active Substance: OMEPRAZOLE
     Dosage: 40 MG, QD
     Route: 048
     Dates: start: 20160624
  4. PALIPERIDONE. [Concomitant]
     Active Substance: PALIPERIDONE
     Dosage: 6 MG, QD
     Route: 065
     Dates: start: 20160624
  5. TEMESTA [Concomitant]
     Active Substance: LORAZEPAM
     Indication: AFFECTIVE DISORDER
     Dosage: 1 MG, TID
     Route: 048
     Dates: start: 20160624
  6. LATUDA [Suspect]
     Active Substance: LURASIDONE HYDROCHLORIDE
     Indication: ACUTE PSYCHOSIS
     Dosage: 80 MG, QD
     Route: 048
     Dates: start: 20160705, end: 20160710
  7. TEMESTA [Concomitant]
     Active Substance: LORAZEPAM
     Indication: NEGATIVE THOUGHTS

REACTIONS (16)
  - Serotonin syndrome [Recovered/Resolved]
  - Hyperreflexia [Recovered/Resolved]
  - Blood potassium decreased [Unknown]
  - Hyperhidrosis [Recovered/Resolved]
  - Myoclonus [Recovered/Resolved]
  - Glomerular filtration rate decreased [Unknown]
  - Muscle rigidity [Recovered/Resolved]
  - Tremor [Recovered/Resolved]
  - Mydriasis [Recovered/Resolved]
  - Blood sodium decreased [Recovered/Resolved]
  - Acute kidney injury [Unknown]
  - Blood creatinine increased [Unknown]
  - Chills [Recovered/Resolved]
  - Muscle twitching [Recovered/Resolved]
  - Sedation [Recovered/Resolved]
  - Diarrhoea [Recovered/Resolved]

NARRATIVE: CASE EVENT DATE: 20160709
